FAERS Safety Report 6640615-3 (Version None)
Quarter: 2010Q1

REPORT INFORMATION
  Report Type: 
  Country: None (occurrence: None)
  Receive Date: 20100318
  Receipt Date: 20100308
  Transmission Date: 20100710
  Serious: Yes (Other)
  Sender: FDA-Public Use
  Company Number: DE-BRISTOL-MYERS SQUIBB COMPANY-15007701

PATIENT
  Age: 49 Year
  Sex: Male

DRUGS (3)
  1. CISPLATIN [Suspect]
     Indication: TESTICULAR SEMINOMA (PURE)
  2. ETOPOSIDE [Suspect]
     Indication: TESTICULAR SEMINOMA (PURE)
  3. BLEOMYCIN SULFATE [Suspect]
     Indication: TESTICULAR SEMINOMA (PURE)

REACTIONS (1)
  - ARTERIAL THROMBOSIS [None]
